FAERS Safety Report 12169442 (Version 3)
Quarter: 2017Q1

REPORT INFORMATION
  Report Type: Report from Study
  Country: US (occurrence: US)
  Receive Date: 20160310
  Receipt Date: 20170126
  Transmission Date: 20170428
  Serious: Yes (Hospitalization)
  Sender: FDA-Public Use
  Company Number: US-OTSUKA-2016_003167

PATIENT
  Age: 42 Year
  Sex: Male

DRUGS (1)
  1. ARIPIPRAZOLE. [Suspect]
     Active Substance: ARIPIPRAZOLE
     Indication: PRODUCT USED FOR UNKNOWN INDICATION
     Dosage: 400 MG, QM
     Route: 065
     Dates: start: 20160125

REACTIONS (3)
  - Dysphemia [Unknown]
  - Limb injury [Unknown]
  - Dysarthria [Unknown]

NARRATIVE: CASE EVENT DATE: 20160507
